FAERS Safety Report 4707850-2 (Version None)
Quarter: 2005Q3

REPORT INFORMATION
  Report Type: 
  Country: None (occurrence: None)
  Receive Date: 20050701
  Receipt Date: 20050622
  Transmission Date: 20060218
  Serious: Yes (Other)
  Sender: FDA-Public Use
  Company Number: 2005092470

PATIENT
  Age: 27 Year
  Sex: Female

DRUGS (1)
  1. DEPO-PROVERA [Suspect]
     Indication: CONTRACEPTION
     Dosage: (SINGLE INTERVAL: TRIMESTRAL)

REACTIONS (3)
  - ABORTION SPONTANEOUS [None]
  - PAIN IN EXTREMITY [None]
  - VARICOSE VEIN [None]
